FAERS Safety Report 13982078 (Version 1)
Quarter: 2017Q3

REPORT INFORMATION
  Report Type: Spontaneous
  Country: PL (occurrence: PL)
  Receive Date: 20170918
  Receipt Date: 20170918
  Transmission Date: 20171128
  Serious: Yes (Hospitalization, Other)
  Sender: FDA-Public Use
  Company Number: PL-MYLANLABS-2017M1056258

PATIENT
  Age: 50 Year
  Sex: Male

DRUGS (16)
  1. HALOPERIDOL. [Suspect]
     Active Substance: HALOPERIDOL
     Dosage: 50 MG, QW
     Route: 030
     Dates: start: 201509
  2. RISPERIDONE. [Suspect]
     Active Substance: RISPERIDONE
     Dosage: 5 MG, QD
     Dates: start: 2012
  3. RISPERIDONE. [Suspect]
     Active Substance: RISPERIDONE
     Dosage: 50 MG, Q2W
  4. RISPERIDONE. [Suspect]
     Active Substance: RISPERIDONE
     Dosage: 25 MG, UNK
     Route: 030
     Dates: start: 201509
  5. AMISULPRIDE [Suspect]
     Active Substance: AMISULPRIDE
     Indication: AGGRESSION
     Dosage: 400 MG, QD
  6. HALOPERIDOL. [Suspect]
     Active Substance: HALOPERIDOL
     Indication: AGGRESSION
     Dosage: 11 MG, QD
  7. OLANZAPINE. [Suspect]
     Active Substance: OLANZAPINE
     Dosage: 20 MG, QD
  8. HALOPERIDOL. [Suspect]
     Active Substance: HALOPERIDOL
     Dosage: 100 MG, QW
     Route: 030
     Dates: start: 2016
  9. RISPERIDONE. [Suspect]
     Active Substance: RISPERIDONE
     Dosage: 37.5 MG, Q2W
  10. RISPERIDONE. [Suspect]
     Active Substance: RISPERIDONE
     Dosage: 50 MG, Q2W
     Route: 030
     Dates: start: 2016
  11. OLANZAPINE. [Suspect]
     Active Substance: OLANZAPINE
     Dosage: 405 MG, MONTHLY
     Dates: start: 2016
  12. QUETIAPINE. [Suspect]
     Active Substance: QUETIAPINE
     Indication: PRODUCT USED FOR UNKNOWN INDICATION
     Dosage: 500 MG, QD
     Dates: start: 2012
  13. HALOPERIDOL. [Suspect]
     Active Substance: HALOPERIDOL
     Dosage: 4 MG, QD
  14. HALOPERIDOL. [Suspect]
     Active Substance: HALOPERIDOL
     Dosage: 100 MG, Q2W
     Route: 030
     Dates: start: 2015
  15. HALOPERIDOL. [Suspect]
     Active Substance: HALOPERIDOL
     Dosage: 100 MG, UNK
     Route: 030
     Dates: start: 201509
  16. RISPERIDONE. [Suspect]
     Active Substance: RISPERIDONE
     Dosage: 50 MG, Q2W
     Route: 030
     Dates: start: 201509

REACTIONS (2)
  - Mental impairment [Recovering/Resolving]
  - Therapeutic response decreased [Recovering/Resolving]
